FAERS Safety Report 5486783-0 (Version None)
Quarter: 2007Q4

REPORT INFORMATION
  Report Type: 
  Country: None (occurrence: None)
  Receive Date: 20071016
  Receipt Date: 20071006
  Transmission Date: 20080405
  Serious: Yes (Other)
  Sender: FDA-Public Use
  Company Number: B0491078A

PATIENT
  Age: 6 Week

DRUGS (9)
  1. ZIDOVUDINE [Suspect]
     Indication: ANTIVIRAL PROPHYLAXIS
     Route: 048
  2. LAMIVUDINE [Suspect]
     Indication: ANTIVIRAL PROPHYLAXIS
     Route: 048
  3. NEVIRAPINE [Suspect]
     Indication: ANTIVIRAL PROPHYLAXIS
     Route: 048
  4. COMBIVIR [Suspect]
     Indication: ANTIVIRAL PROPHYLAXIS
  5. LAMIVUDINE [Suspect]
  6. STAVUDINE [Suspect]
     Indication: ANTIVIRAL PROPHYLAXIS
  7. NELFINAVIR [Suspect]
     Indication: ANTIVIRAL PROPHYLAXIS
  8. KALETRA [Suspect]
     Indication: ANTIVIRAL PROPHYLAXIS
  9. NEVIRAPINE [Suspect]

REACTIONS (1)
  - ALANINE AMINOTRANSFERASE ABNORMAL [None]
